FAERS Safety Report 9190547 (Version 2)
Quarter: 2013Q2

REPORT INFORMATION
  Report Type: Spontaneous
  Country: US (occurrence: US)
  Receive Date: 20130326
  Receipt Date: 20130417
  Transmission Date: 20140414
  Serious: Yes (Other)
  Sender: FDA-Public Use
  Company Number: US-009507513-1303USA011974

PATIENT
  Sex: Female

DRUGS (3)
  1. VICTRELIS [Suspect]
     Indication: CHRONIC HEPATITIS C
     Dosage: UNK
     Route: 048
     Dates: end: 20130318
  2. RIBAPAK [Suspect]
     Indication: CHRONIC HEPATITIS C
     Dosage: 1200 MG (DAILY) DIVIDED DOSE DAILY
     Route: 065
     Dates: start: 20130204, end: 20130318
  3. PEGASYS [Suspect]
     Indication: CHRONIC HEPATITIS C
     Dosage: 180 MICROGRAM, QW
     Route: 058
     Dates: start: 20130204, end: 20130318

REACTIONS (4)
  - Heart rate irregular [Unknown]
  - Heart rate increased [Unknown]
  - Depression [Unknown]
  - Diarrhoea [Unknown]
